FAERS Safety Report 14180903 (Version 1)
Quarter: 2017Q4

REPORT INFORMATION
  Report Type: Spontaneous
  Country: AT (occurrence: AT)
  Receive Date: 20171110
  Receipt Date: 20171110
  Transmission Date: 20180321
  Serious: Yes (Other)
  Sender: FDA-Public Use
  Company Number: AT-TEVA-824835ROM

PATIENT
  Age: 60 Year
  Sex: Female

DRUGS (3)
  1. DEXAMETHASONE. [Suspect]
     Active Substance: DEXAMETHASONE
     Indication: PLASMA CELL MYELOMA
     Dosage: 20 MG ON DAY 1, 2, 4, 5, 8, 9, 11 AND 12; 21-DAY CYCLE
     Route: 065
  2. PANOBINOSTAT [Suspect]
     Active Substance: PANOBINOSTAT
     Indication: PLASMA CELL MYELOMA
     Dosage: 20 MG ON DAY 1, 3, 5, 8, 10 AND 12; 21-DAY CYCLE
     Route: 065
  3. BORTEZOMIB [Suspect]
     Active Substance: BORTEZOMIB
     Indication: PLASMA CELL MYELOMA
     Dosage: 1.3 MG/M2 ON DAY 1, 4, 8 AND 11; 21-DAY CYCLE
     Route: 058

REACTIONS (2)
  - Diarrhoea [Recovered/Resolved]
  - Thrombocytopenia [Unknown]
